FAERS Safety Report 8854530 (Version 5)
Quarter: 2013Q1

REPORT INFORMATION
  Report Type: Report from Study
  Country: US (occurrence: US)
  Receive Date: 20121023
  Receipt Date: 20130115
  Transmission Date: 20140127
  Serious: Yes (Other)
  Sender: FDA-Public Use
  Company Number: US-VERTEX PHARMACEUTICAL INC.-2012-023332

PATIENT
  Age: 55 Year
  Sex: Male
  Weight: 77 kg

DRUGS (14)
  1. VX-950 (TELAPREVIR) [Suspect]
     Indication: HEPATITIS C
     Dosage: 750 MG, TID
     Route: 048
     Dates: start: 20120921
  2. RIBAVIRIN [Suspect]
     Indication: HEPATITIS C
     Dosage: 3 PILLS IN AM + 2 IN PM
     Route: 048
     Dates: start: 20120921, end: 20121011
  3. RIBAVIRIN [Suspect]
     Dosage: 1 DF, BID
     Route: 048
     Dates: start: 20121011
  4. PEGASYS [Suspect]
     Indication: HEPATITIS C
     Dosage: 180 ?G, QW
     Route: 058
     Dates: start: 20120921
  5. ANTIHYPERTENSIVES [Concomitant]
     Indication: HYPERTENSION
  6. LISINOPRIL [Concomitant]
  7. ISOSORBIDE DINITRATE [Concomitant]
  8. AMITRIPTYLINE [Concomitant]
  9. CHOLESTROL MED [Concomitant]
     Indication: BLOOD CHOLESTEROL
  10. HEART PILL [Concomitant]
     Indication: CARDIAC DISORDER
  11. LASIX [Concomitant]
  12. LORTAB [Concomitant]
  13. KLOR-CON [Concomitant]
  14. HYDROXIZINE [Concomitant]

REACTIONS (9)
  - Red blood cell count decreased [Not Recovered/Not Resolved]
  - Dyspnoea [Not Recovered/Not Resolved]
  - Bone pain [Not Recovered/Not Resolved]
  - Anxiety [Not Recovered/Not Resolved]
  - Insomnia [Recovered/Resolved]
  - Tremor [Not Recovered/Not Resolved]
  - Feeling cold [Not Recovered/Not Resolved]
  - Rash generalised [Not Recovered/Not Resolved]
  - Pruritus [Not Recovered/Not Resolved]
